FAERS Safety Report 7416317-2 (Version None)
Quarter: 2011Q2

REPORT INFORMATION
  Report Type: 
  Country: None (occurrence: None)
  Receive Date: 20110414
  Receipt Date: 20110412
  Transmission Date: 20111010
  Serious: Yes (Other)
  Sender: FDA-Public Use
  Company Number: SE-PFIZER INC-2010061197

PATIENT
  Sex: Female

DRUGS (8)
  1. XANOR [Suspect]
     Dosage: 2 MG, 2X/DAY
     Dates: start: 19870101
  2. XANOR DEPOT [Suspect]
     Dosage: 1 MG, 3X/DAY
  3. MADOPARK [Concomitant]
     Dosage: UNK
  4. FOLACIN [Concomitant]
     Dosage: UNK
  5. PREDNISOLON [Concomitant]
     Dosage: UNK
  6. AZILECT [Concomitant]
     Dosage: UNK
  7. IRON [Concomitant]
     Dosage: UNK
  8. XANOR [Suspect]
     Dosage: 0.5 MG, AS NEEDED

REACTIONS (8)
  - MEMORY IMPAIRMENT [None]
  - DRUG DEPENDENCE [None]
  - PARKINSONISM [None]
  - NAUSEA [None]
  - DRUG INTOLERANCE [None]
  - HEADACHE [None]
  - PAIN [None]
  - ASTHENIA [None]
